FAERS Safety Report 10064973 (Version 1)
Quarter: 2014Q1

REPORT INFORMATION
  Report Type: Spontaneous
  Country: US (occurrence: None)
  Receive Date: 20140328
  Receipt Date: 20140328
  Transmission Date: 20141002
  Serious: No
  Sender: FDA-Public Use
  Company Number: 1000054611

PATIENT
  Age: 74 Year
  Sex: Female

DRUGS (11)
  1. LINZESS (LINACLOTIDE) (145 MICROGRAM, CAPSULES) [Suspect]
     Indication: CONSTIPATION
     Route: 048
     Dates: start: 20140222, end: 20140222
  2. CLONIDINE (CLONIDINE) (CLONIDINE) [Concomitant]
  3. DILTIAZEM (DILTIAZEM HYDROCHLORIDE) (DILTIAZEM HYDROCHLORIDE) [Concomitant]
  4. CARVEDILOL (CARVEDILOL) (CARVEDILOL) [Concomitant]
  5. REVATIO (SILDENAFIL CITRATE) (SILDENAFIL CITRATE) [Concomitant]
  6. LEVOXYYL (LEVOTHYROXINE SODIUM) (LEVOTHYROXINE SODIUM) [Concomitant]
  7. TRAMADOL (TRAMADOL) (TRAMADOL) [Concomitant]
  8. GABAPENTIN (GABAPENTIN) (GABAPENTIN) [Concomitant]
  9. STOOL SOFTENER (DOCUSATE SODIUM) (DOCUSATE SODIUM) [Concomitant]
  10. CALCIUM (CALCIUM) (CALCIUM) [Concomitant]
  11. VITAMIN D (VITAMIN D) (VITAMIN D) [Concomitant]

REACTIONS (1)
  - Abdominal pain [None]
